FAERS Safety Report 25038481 (Version 5)
Quarter: 2025Q4

REPORT INFORMATION
  Report Type: Report from Study
  Country: US (occurrence: None)
  Receive Date: 20250304
  Receipt Date: 20251114
  Transmission Date: 20260118
  Serious: Yes (Hospitalization, Other)
  Sender: UCB
  Company Number: US-UCBSA-2025011577

PATIENT
  Age: 17 Year
  Weight: 32.3 kg

DRUGS (4)
  1. FENFLURAMINE [Suspect]
     Active Substance: FENFLURAMINE
     Indication: Lennox-Gastaut syndrome
     Dosage: 6 MILLILITER, 2X/DAY (BID)
  2. FENFLURAMINE [Suspect]
     Active Substance: FENFLURAMINE
     Dosage: 12MG/DAY
  3. FENFLURAMINE [Suspect]
     Active Substance: FENFLURAMINE
     Dosage: 6 MILLILITER, 2X/DAY (BID)
  4. FENFLURAMINE [Suspect]
     Active Substance: FENFLURAMINE
     Dosage: 6 MILLILITER, 2X/DAY (BID)

REACTIONS (6)
  - Mitral valve incompetence [Not Recovered/Not Resolved]
  - Pneumonia [Recovered/Resolved]
  - Myoclonic epilepsy [Not Recovered/Not Resolved]
  - Pancreatitis [Recovered/Resolved]
  - Left ventricular dilatation [Unknown]
  - Left ventricular dysfunction [Unknown]
